FAERS Safety Report 4389109-9 (Version None)
Quarter: 2004Q2

REPORT INFORMATION
  Report Type: 
  Country: None (occurrence: None)
  Receive Date: 20040624
  Receipt Date: 20040615
  Transmission Date: 20050107
  Serious: Yes (Other)
  Sender: FDA-Public Use
  Company Number: 2004-06-1037

PATIENT
  Age: 4 Month
  Sex: Male

DRUGS (1)
  1. GENTAMICIN [Suspect]

REACTIONS (6)
  - ALKALOSIS [None]
  - BARTTER'S SYNDROME [None]
  - ELECTROLYTE IMBALANCE [None]
  - HYPOCALCAEMIA [None]
  - HYPOMAGNESAEMIA [None]
  - RENAL TUBULAR DISORDER [None]
